FAERS Safety Report 6115328-7 (Version None)
Quarter: 2009Q1

REPORT INFORMATION
  Report Type: 
  Country: None (occurrence: None)
  Receive Date: 20090313
  Receipt Date: 20090311
  Transmission Date: 20090719
  Serious: Yes (Hospitalization)
  Sender: FDA-Public Use
  Company Number: IL-JNJFOC-20090303009

PATIENT
  Age: 50 Year
  Sex: Female

DRUGS (2)
  1. CONCERTA [Suspect]
     Indication: SUICIDE ATTEMPT
  2. PARACETAMOL [Suspect]
     Indication: SUICIDE ATTEMPT

REACTIONS (1)
  - OVERDOSE [None]
